FAERS Safety Report 24358180 (Version 1)
Quarter: 2024Q3

REPORT INFORMATION
  Report Type: Spontaneous
  Country: JP (occurrence: JP)
  Receive Date: 20240924
  Receipt Date: 20240924
  Transmission Date: 20241016
  Serious: Yes (Hospitalization)
  Sender: LUNDBECK
  Company Number: JP-SA-2024SA272010

PATIENT

DRUGS (8)
  1. SABRIL [Suspect]
     Active Substance: VIGABATRIN
     Indication: Infantile spasms
     Dosage: 250 MG, BID
     Route: 048
     Dates: start: 20211218, end: 20220412
  2. SABRIL [Suspect]
     Active Substance: VIGABATRIN
     Dosage: 150 MG, BID
     Route: 048
     Dates: start: 20210524, end: 20210527
  3. SABRIL [Suspect]
     Active Substance: VIGABATRIN
     Dosage: 300 MG, BID
     Route: 048
     Dates: start: 20210528, end: 20211217
  4. SABRIL [Suspect]
     Active Substance: VIGABATRIN
     Dosage: 150 MG, BID
     Route: 048
     Dates: start: 20220413, end: 20220521
  5. SABRIL [Suspect]
     Active Substance: VIGABATRIN
     Dosage: 100 MG, BID
     Route: 048
     Dates: start: 20220522, end: 20220613
  6. SABRIL [Suspect]
     Active Substance: VIGABATRIN
     Dosage: 50 MG, BID
     Route: 048
     Dates: start: 20220614, end: 20220711
  7. PROPRANOLOL HYDROCHLORIDE [Concomitant]
     Active Substance: PROPRANOLOL HYDROCHLORIDE
     Indication: Infantile spasms
     Dosage: DAILY DOSE: 12 MG
     Route: 048
     Dates: start: 20210219
  8. EVEROLIMUS [Concomitant]
     Active Substance: EVEROLIMUS
     Indication: Infantile spasms
     Dosage: DAILY DOSE: 1 MG
     Route: 048
     Dates: start: 20210517, end: 20221119

REACTIONS (1)
  - Febrile convulsion [Recovered/Resolved]

NARRATIVE: CASE EVENT DATE: 20211221
